FAERS Safety Report 5130973-3 (Version None)
Quarter: 2006Q4

REPORT INFORMATION
  Report Type: 
  Country: None (occurrence: None)
  Receive Date: 20060829
  Receipt Date: 20060809
  Transmission Date: 20070319
  Serious: No
  Sender: FDA-Public Use
  Company Number: PHEH2006US09137

PATIENT
  Age: 22 Year
  Sex: Female

DRUGS (3)
  1. EXJADE [Suspect]
     Indication: IRON OVERLOAD
     Dosage: 1500 MG, QD
     Dates: start: 20060524
  2. HYDROXYUREA [Concomitant]
  3. FOLIC ACID [Concomitant]

REACTIONS (3)
  - ABDOMINAL PAIN UPPER [None]
  - DIARRHOEA [None]
  - TINNITUS [None]
